FAERS Safety Report 13282214 (Version 1)
Quarter: 2017Q1

REPORT INFORMATION
  Report Type: Spontaneous
  Country: GB (occurrence: GB)
  Receive Date: 20170301
  Receipt Date: 20170301
  Transmission Date: 20170428
  Serious: Yes (Other)
  Sender: FDA-Public Use
  Company Number: GB-GLAXOSMITHKLINE-GB2017026169

PATIENT
  Age: 21 Year
  Sex: Male
  Weight: 53 kg

DRUGS (5)
  1. LAMOTRIGINE. [Suspect]
     Active Substance: LAMOTRIGINE
     Indication: PRODUCT USED FOR UNKNOWN INDICATION
     Dosage: 50 MG, BID
     Route: 048
  2. EPILIM [Concomitant]
     Active Substance: VALPROATE SODIUM
     Indication: EPILEPSY
     Dosage: 1 G, BID
     Route: 065
     Dates: start: 20160209
  3. IBANDRONIC ACID [Concomitant]
     Active Substance: IBANDRONIC ACID
     Indication: BONE DENSITY ABNORMAL
     Dosage: 150 MG, UNK
     Route: 048
     Dates: start: 20140704
  4. LAMOTRIGINE. [Suspect]
     Active Substance: LAMOTRIGINE
     Dosage: 25 MG, BID
     Route: 048
     Dates: start: 20160926
  5. CALCIUM CARBONATE + CHOLECALCIFEROL [Concomitant]
     Active Substance: CALCIUM CARBONATE\CHOLECALCIFEROL
     Indication: BONE DENSITY ABNORMAL
     Dosage: 1.5G AND 10MCG.
     Route: 048
     Dates: start: 20140704

REACTIONS (5)
  - Stevens-Johnson syndrome [Not Recovered/Not Resolved]
  - Rash [Not Recovered/Not Resolved]
  - Lip swelling [Not Recovered/Not Resolved]
  - Lip ulceration [Not Recovered/Not Resolved]
  - Malaise [Not Recovered/Not Resolved]

NARRATIVE: CASE EVENT DATE: 20161025
